FAERS Safety Report 24966980 (Version 1)
Quarter: 2025Q1

REPORT INFORMATION
  Report Type: Spontaneous
  Country: US (occurrence: US)
  Receive Date: 20250213
  Receipt Date: 20250213
  Transmission Date: 20250409
  Serious: Yes (Other)
  Sender: COVIS PHARMA GMBH
  Company Number: US-Covis Pharma GmbH-2025COV00174

PATIENT
  Age: 16 Year
  Sex: Female
  Weight: 76.2 kg

DRUGS (3)
  1. FERAHEME [Suspect]
     Active Substance: FERUMOXYTOL NON-STOICHIOMETRIC MAGNETITE
     Dates: start: 20250128, end: 20250205
  2. VITAMIN D [Suspect]
     Active Substance: VITAMIN D NOS
     Dosage: VITAMIN D 1,250 MCG PO ONCE WEEKLY
     Route: 048
  3. NOVAFERRUM [Suspect]
     Active Substance: ASCORBIC ACID\FOLIC ACID\IRON
     Dosage: NOVAFERRUM 50 MG PO ONCE DAILY
     Route: 048

REACTIONS (3)
  - Swelling face [Recovered/Resolved]
  - Urticaria [Recovered/Resolved]
  - Pruritus [Recovered/Resolved]

NARRATIVE: CASE EVENT DATE: 20250203
